FAERS Safety Report 6132928-9 (Version None)
Quarter: 2009Q1

REPORT INFORMATION
  Report Type: 
  Country: None (occurrence: None)
  Receive Date: 20090326
  Receipt Date: 20090220
  Transmission Date: 20090719
  Serious: No
  Sender: FDA-Public Use
  Company Number: US-BAYER-200913925NA

PATIENT
  Age: 43 Year
  Sex: Female
  Weight: 61 kg

DRUGS (4)
  1. MIRENA [Suspect]
     Indication: CONTRACEPTION
     Dosage: CONTINUOUS
     Route: 015
     Dates: start: 20090212
  2. ADVIL LIQUI-GELS [Concomitant]
  3. ALEVE [Concomitant]
  4. VITAMINS NOS [Concomitant]

REACTIONS (3)
  - ABDOMINAL DISTENSION [None]
  - ABDOMINAL PAIN LOWER [None]
  - MENSTRUATION DELAYED [None]
